FAERS Safety Report 20601005 (Version 1)
Quarter: 2022Q1

REPORT INFORMATION
  Report Type: Spontaneous
  Country: US (occurrence: US)
  Receive Date: 20220316
  Receipt Date: 20220316
  Transmission Date: 20220424
  Serious: No
  Sender: FDA-Public Use
  Company Number: US-ASTELLAS-2021US030791

PATIENT
  Age: 68 Year
  Sex: Female

DRUGS (1)
  1. CRESEMBA [Suspect]
     Active Substance: ISAVUCONAZONIUM SULFATE
     Indication: Infection prophylaxis
     Dosage: 1116 MG, ONCE DAILY (372MG  3 IN 1 DAY)
     Route: 048
     Dates: start: 20210103

REACTIONS (1)
  - Off label use [Unknown]

NARRATIVE: CASE EVENT DATE: 20210103
